FAERS Safety Report 21437745 (Version 3)
Quarter: 2022Q4

REPORT INFORMATION
  Report Type: Report from Study
  Country: US (occurrence: US)
  Receive Date: 20221011
  Receipt Date: 20221117
  Transmission Date: 20230112
  Serious: Yes (Other)
  Sender: FDA-Public Use
  Company Number: US-ABBVIE-22K-163-4362756-00

PATIENT
  Sex: Female

DRUGS (2)
  1. HUMIRA [Suspect]
     Active Substance: ADALIMUMAB
     Indication: Rheumatoid arthritis
     Dosage: CITRATE FREE, FORM STRENGTH: 40 MILLIGRAM/MILLILITERS
     Route: 058
  2. PFIZER-BIONTECH COVID-19 VACCINE [Concomitant]
     Active Substance: TOZINAMERAN
     Indication: COVID-19 immunisation
     Dosage: ONE IN ONCE
     Route: 030

REACTIONS (13)
  - Blindness unilateral [Unknown]
  - Eye irritation [Unknown]
  - Ocular hyperaemia [Unknown]
  - Immune system disorder [Unknown]
  - Parkinson^s disease [Unknown]
  - Freeman-Sheldon syndrome [Unknown]
  - Pain in extremity [Recovered/Resolved]
  - Cataract [Unknown]
  - Pain in extremity [Unknown]
  - Cataract operation complication [Recovered/Resolved]
  - Injury corneal [Unknown]
  - Muscle twitching [Unknown]
  - Visual impairment [Unknown]

NARRATIVE: CASE EVENT DATE: 20220101
